FAERS Safety Report 5706109-4 (Version None)
Quarter: 2008Q2

REPORT INFORMATION
  Report Type: 
  Country: None (occurrence: None)
  Receive Date: 20080415
  Receipt Date: 20080404
  Transmission Date: 20081010
  Serious: Yes (Death)
  Sender: FDA-Public Use
  Company Number: CH-PFIZER INC-2008023552

PATIENT
  Age: 9 Year
  Sex: Female

DRUGS (39)
  1. PROSTIN VR SOLUTION, STERILE [Suspect]
     Indication: LIVER TRANSPLANT
     Dosage: FREQ:DAILY, EVERY DAY
     Dates: start: 20070727, end: 20070731
  2. SIMULECT [Suspect]
     Indication: LIVER TRANSPLANT
     Dates: start: 20070727, end: 20070727
  3. SIMULECT [Suspect]
     Dates: start: 20070731, end: 20070731
  4. PROGRAF [Suspect]
     Indication: LIVER TRANSPLANT
     Dates: start: 20070727, end: 20070806
  5. HEPARIN [Concomitant]
     Dates: start: 20070727, end: 20070807
  6. ZINACEF [Concomitant]
     Route: 042
     Dates: start: 20070727, end: 20070728
  7. GARAMYCIN [Concomitant]
     Route: 042
     Dates: start: 20070727, end: 20070728
  8. GARAMYCIN [Concomitant]
     Dates: start: 20070727, end: 20070728
  9. AMPHO-MORONAL [Concomitant]
     Route: 042
     Dates: start: 20070727, end: 20070728
  10. AMPHO-MORONAL [Concomitant]
     Dates: start: 20070727, end: 20070728
  11. MORPHINE HCL ELIXIR [Concomitant]
     Dates: start: 20070727, end: 20070808
  12. MORPHINE HCL ELIXIR [Concomitant]
     Dates: start: 20070727, end: 20070808
  13. CYMEVENE [Concomitant]
     Dates: start: 20070727, end: 20070809
  14. CYMEVENE [Concomitant]
     Dates: start: 20070727, end: 20070809
  15. NIPRIDE [Concomitant]
     Route: 042
     Dates: start: 20070727, end: 20070729
  16. NIPRIDE [Concomitant]
     Dates: start: 20070727, end: 20070729
  17. TRINITROSAN [Concomitant]
     Route: 042
     Dates: start: 20070727, end: 20070730
  18. TRINITROSAN [Concomitant]
     Dates: start: 20070727, end: 20070730
  19. LASIX [Concomitant]
     Dates: start: 20070727, end: 20070727
  20. LASIX [Concomitant]
     Dates: start: 20070727, end: 20070727
  21. TIENAM [Concomitant]
     Dates: start: 20070727, end: 20070803
  22. TIENAM [Concomitant]
     Dates: start: 20070727, end: 20070803
  23. VANCOMYCIN HYDROCHLORIDE [Concomitant]
     Route: 042
     Dates: start: 20070728, end: 20070803
  24. VANCOMYCIN HYDROCHLORIDE [Concomitant]
     Dates: start: 20070728, end: 20070803
  25. RENITEN [Concomitant]
     Dates: start: 20070729, end: 20070803
  26. RENITEN [Concomitant]
     Dates: start: 20070729, end: 20070803
  27. APRICAL [Concomitant]
     Route: 042
     Dates: start: 20070729, end: 20070731
  28. APRICAL [Concomitant]
     Dates: start: 20070729, end: 20070731
  29. DOBUTAMINE HCL [Concomitant]
     Route: 042
     Dates: start: 20070729, end: 20070730
  30. DOBUTAMINE HCL [Concomitant]
     Dates: start: 20070729, end: 20070730
  31. ADALAT [Concomitant]
     Route: 048
     Dates: start: 20070731, end: 20070803
  32. ADALAT [Concomitant]
     Route: 048
     Dates: start: 20070731, end: 20070803
  33. SOLU-MEDROL [Concomitant]
     Dates: start: 20070801, end: 20070809
  34. SOLU-MEDROL [Concomitant]
     Dates: start: 20070801, end: 20070809
  35. BACTRIM [Concomitant]
     Dosage: FREQ:3 PER WEEK
     Route: 048
     Dates: start: 20070803, end: 20070807
  36. BACTRIM [Concomitant]
     Route: 048
     Dates: start: 20070803, end: 20070807
  37. ACETAMINOPHEN [Concomitant]
     Route: 042
     Dates: start: 20070727, end: 20070807
  38. ACETYLSALICYLIC ACID SRT [Concomitant]
     Indication: MYOCARDIAL ISCHAEMIA
     Dosage: DAILY DOSE:100MG
     Route: 048
     Dates: start: 20070727, end: 20070807
  39. NEXIUM [Concomitant]
     Dosage: DAILY DOSE:40MG
     Route: 048
     Dates: start: 20070803, end: 20070807

REACTIONS (4)
  - CAPILLARY LEAK SYNDROME [None]
  - CARDIOVASCULAR DISORDER [None]
  - PYREXIA [None]
  - SYSTEMIC INFLAMMATORY RESPONSE SYNDROME [None]
